FAERS Safety Report 9435800 (Version 3)
Quarter: 2013Q4

REPORT INFORMATION
  Report Type: Report from Study
  Country: US (occurrence: KP)
  Receive Date: 20130801
  Receipt Date: 20131205
  Transmission Date: 20140711
  Serious: Yes (Hospitalization)
  Sender: FDA-Public Use
  Company Number: KP-FRI-1000037886

PATIENT
  Age: 66 Year
  Sex: Male
  Weight: 41 kg

DRUGS (1)
  1. ROFLUMILAST [Suspect]
     Indication: CHRONIC OBSTRUCTIVE PULMONARY DISEASE
     Dosage: 500 MCG
     Route: 048
     Dates: start: 20120703, end: 20120823

REACTIONS (1)
  - Diarrhoea infectious [Recovered/Resolved]
